FAERS Safety Report 16675834 (Version 1)
Quarter: 2019Q3

REPORT INFORMATION
  Report Type: Spontaneous
  Country: FR (occurrence: FR)
  Receive Date: 20190807
  Receipt Date: 20190807
  Transmission Date: 20191004
  Serious: Yes (Life-Threatening, Hospitalization)
  Sender: FDA-Public Use
  Company Number: FR-B.I. PHARMACEUTICALS,INC./RIDGEFIELD-2019-12-002510

PATIENT
  Age: 11 Year
  Sex: Female
  Weight: 31 kg

DRUGS (1)
  1. CATAPRESSAN [Suspect]
     Active Substance: CLONIDINE
     Indication: PREMEDICATION
     Dosage: ; IN TOTAL
     Route: 048
     Dates: start: 20190726, end: 20190726

REACTIONS (5)
  - Hypotension [Recovered/Resolved]
  - Bradycardia [Recovered/Resolved]
  - Incorrect dose administered [Recovered/Resolved]
  - Product administration error [Recovered/Resolved]
  - Product preparation error [Recovered/Resolved]

NARRATIVE: CASE EVENT DATE: 20190726
